FAERS Safety Report 13881960 (Version 2)
Quarter: 2017Q3

REPORT INFORMATION
  Report Type: Spontaneous
  Country: KR (occurrence: KR)
  Receive Date: 20170818
  Receipt Date: 20170825
  Transmission Date: 20171127
  Serious: Yes (Other)
  Sender: FDA-Public Use
  Company Number: PHHY2017KR121379

PATIENT
  Age: 50 Year
  Sex: Female

DRUGS (2)
  1. OLANZAPINE. [Suspect]
     Active Substance: OLANZAPINE
     Indication: HALLUCINATION, AUDITORY
     Dosage: 10 MG, UNK
     Route: 065
  2. OLANZAPINE. [Suspect]
     Active Substance: OLANZAPINE
     Indication: DELUSION

REACTIONS (4)
  - Pyrexia [Unknown]
  - Hepatic function abnormal [Unknown]
  - Rash [Unknown]
  - Hypersensitivity [Unknown]
